FAERS Safety Report 10086377 (Version 1)
Quarter: 2014Q2

REPORT INFORMATION
  Report Type: Spontaneous
  Country: US (occurrence: US)
  Receive Date: 20140418
  Receipt Date: 20140418
  Transmission Date: 20141212
  Serious: Yes (Other)
  Sender: FDA-Public Use
  Company Number: US-PFIZER INC-2014109317

PATIENT
  Sex: Male
  Weight: 81.63 kg

DRUGS (2)
  1. NEURONTIN [Suspect]
     Indication: NEUROPATHY PERIPHERAL
     Dosage: UNK, DAILY
     Dates: start: 2007, end: 2009
  2. NEURONTIN [Suspect]
     Indication: HYPOAESTHESIA

REACTIONS (1)
  - Back disorder [Unknown]
